FAERS Safety Report 9915686 (Version 1)
Quarter: 2014Q1

REPORT INFORMATION
  Report Type: Spontaneous
  Country: US (occurrence: None)
  Receive Date: 20140219
  Receipt Date: 20140219
  Transmission Date: 20141002
  Serious: Yes (Other)
  Sender: FDA-Public Use
  Company Number: None

PATIENT
  Age: 67 Year
  Sex: Male

DRUGS (8)
  1. OXYBUTYNIN CHLORIDE [Suspect]
     Indication: NOCTURIA
     Dosage: 20 EA ONE AT BEDTIME BY MOUTH
     Route: 048
     Dates: start: 20131120, end: 20131128
  2. CARVEDILOL [Concomitant]
  3. LISINOPRIL [Concomitant]
  4. FINASTERIDE [Concomitant]
  5. ASPIRIN [Concomitant]
  6. B-12 [Concomitant]
  7. VITAMIN [Concomitant]
  8. D-3 VITAMIN [Concomitant]

REACTIONS (8)
  - Hypertension [None]
  - Mental disorder [None]
  - Mood altered [None]
  - Diplopia [None]
  - Epistaxis [None]
  - Confusional state [None]
  - Anger [None]
  - Depression [None]
